FAERS Safety Report 7997919-1 (Version None)
Quarter: 2011Q4

REPORT INFORMATION
  Report Type: 
  Country: None (occurrence: None)
  Receive Date: 20111221
  Receipt Date: 20111215
  Transmission Date: 20120403
  Serious: Yes (Other)
  Sender: FDA-Public Use
  Company Number: PHHY2011US57043

PATIENT
  Sex: Female

DRUGS (2)
  1. ADDERALL 5 [Concomitant]
     Dosage: UNK UKN, UNK
  2. GILENYA [Suspect]
     Indication: RELAPSING-REMITTING MULTIPLE SCLEROSIS
     Dosage: 0.5 MG, QD
     Route: 048
     Dates: start: 20110217

REACTIONS (5)
  - DIZZINESS [None]
  - HEADACHE [None]
  - MACULAR DEGENERATION [None]
  - TREMOR [None]
  - BLOOD PRESSURE INCREASED [None]
